FAERS Safety Report 16782236 (Version 2)
Quarter: 2020Q2

REPORT INFORMATION
  Report Type: Spontaneous
  Country: US (occurrence: US)
  Receive Date: 20190906
  Receipt Date: 20200625
  Transmission Date: 20200713
  Serious: Yes (Hospitalization, Other)
  Sender: FDA-Public Use
  Company Number: US-ASTRAZENECA-2019SF26227

PATIENT
  Age: 11665 Day
  Sex: Male
  Weight: 197.8 kg

DRUGS (51)
  1. NOVOLOG [Concomitant]
     Active Substance: INSULIN ASPART
     Dates: start: 20170526
  2. LOSARTAN. [Concomitant]
     Active Substance: LOSARTAN
     Dates: start: 20170227
  3. PRAVASTATIN. [Concomitant]
     Active Substance: PRAVASTATIN
  4. BROMOCRIPTINE [Concomitant]
     Active Substance: BROMOCRIPTINE
  5. FARXIGA [Suspect]
     Active Substance: DAPAGLIFLOZIN PROPANEDIOL
     Indication: BLOOD PRESSURE DECREASED
     Route: 048
     Dates: start: 20150821
  6. METFORMIN [Concomitant]
     Active Substance: METFORMIN HYDROCHLORIDE
  7. PROTONIX [Concomitant]
     Active Substance: PANTOPRAZOLE SODIUM
  8. ZOSYN [Concomitant]
     Active Substance: PIPERACILLIN SODIUM\TAZOBACTAM SODIUM
  9. CIPRODEX [Concomitant]
     Active Substance: CIPROFLOXACIN HYDROCHLORIDE\DEXAMETHASONE
  10. FARXIGA [Suspect]
     Active Substance: DAPAGLIFLOZIN PROPANEDIOL
     Indication: WEIGHT DECREASED
     Route: 048
     Dates: start: 20150908
  11. FARXIGA [Suspect]
     Active Substance: DAPAGLIFLOZIN PROPANEDIOL
     Indication: TYPE 2 DIABETES MELLITUS
     Route: 048
     Dates: start: 20150905
  12. SOMA [Concomitant]
     Active Substance: CARISOPRODOL
     Dates: start: 20170526
  13. DEXTROSE. [Concomitant]
     Active Substance: DEXTROSE
  14. TOPAMAX [Concomitant]
     Active Substance: TOPIRAMATE
     Dates: start: 20140818
  15. LOVENOX [Concomitant]
     Active Substance: ENOXAPARIN SODIUM
  16. MORPHINE [Concomitant]
     Active Substance: MORPHINE
  17. FARXIGA [Suspect]
     Active Substance: DAPAGLIFLOZIN PROPANEDIOL
     Indication: BLOOD PRESSURE DECREASED
     Route: 048
     Dates: start: 20150905
  18. INSULIN [Concomitant]
     Active Substance: INSULIN NOS
     Dates: start: 20170526
  19. BACLOFEN. [Concomitant]
     Active Substance: BACLOFEN
  20. LIPITOR [Concomitant]
     Active Substance: ATORVASTATIN CALCIUM
  21. LEVAQUIN [Concomitant]
     Active Substance: LEVOFLOXACIN
  22. GLUCAGEN [Concomitant]
     Active Substance: GLUCAGON HYDROCHLORIDE
  23. FARXIGA [Suspect]
     Active Substance: DAPAGLIFLOZIN PROPANEDIOL
     Indication: WEIGHT DECREASED
     Route: 048
     Dates: start: 20150821
  24. FARXIGA [Suspect]
     Active Substance: DAPAGLIFLOZIN PROPANEDIOL
     Indication: BLOOD PRESSURE DECREASED
     Route: 048
     Dates: start: 20170526
  25. DICYCLOMINE [Concomitant]
     Active Substance: DICYCLOMINE HYDROCHLORIDE
     Dates: start: 20170227
  26. BENTYL [Concomitant]
     Active Substance: DICYCLOMINE HYDROCHLORIDE
     Dates: start: 20150426
  27. ZOFRAN [Concomitant]
     Active Substance: ONDANSETRON HYDROCHLORIDE
  28. LYRICA [Concomitant]
     Active Substance: PREGABALIN
  29. TYLENOL [Concomitant]
     Active Substance: ACETAMINOPHEN
  30. FARXIGA [Suspect]
     Active Substance: DAPAGLIFLOZIN PROPANEDIOL
     Indication: WEIGHT DECREASED
     Route: 048
     Dates: start: 20170526
  31. NORCO [Concomitant]
     Active Substance: ACETAMINOPHEN\HYDROCODONE BITARTRATE
  32. VANCOMYCIN [Concomitant]
     Active Substance: VANCOMYCIN
  33. FAMOTIDIN [Concomitant]
     Active Substance: FAMOTIDINE
  34. CABERGOLINE. [Concomitant]
     Active Substance: CABERGOLINE
  35. FARXIGA [Suspect]
     Active Substance: DAPAGLIFLOZIN PROPANEDIOL
     Indication: TYPE 2 DIABETES MELLITUS
     Route: 048
     Dates: start: 20150821
  36. FARXIGA [Suspect]
     Active Substance: DAPAGLIFLOZIN PROPANEDIOL
     Indication: BLOOD PRESSURE DECREASED
     Route: 048
     Dates: start: 20150908
  37. BROMOCRIPTINE [Concomitant]
     Active Substance: BROMOCRIPTINE
  38. METOPROLOL. [Concomitant]
     Active Substance: METOPROLOL
     Dates: start: 20170526
  39. LEVEMIR [Concomitant]
     Active Substance: INSULIN DETEMIR
     Dates: start: 20170526
  40. PROMETHAZINE [Concomitant]
     Active Substance: PROMETHAZINE HYDROCHLORIDE
     Dates: start: 20160426
  41. ASPIRIN. [Concomitant]
     Active Substance: ASPIRIN
     Dates: start: 20170227
  42. ENOXAPARIN [Concomitant]
     Active Substance: ENOXAPARIN
  43. POLYETHYLENE GLYCOL [Concomitant]
     Active Substance: POLYETHYLENE GLYCOLS
  44. AMOXICILLIN. [Concomitant]
     Active Substance: AMOXICILLIN
     Dates: start: 20130906
  45. ZOSTAVAX [Concomitant]
     Active Substance: VARICELLA-ZOSTER VIRUS STRAIN OKA/MERCK LIVE ANTIGEN
     Dates: start: 20140716
  46. FLUCONAZOLE. [Concomitant]
     Active Substance: FLUCONAZOLE
  47. FARXIGA [Suspect]
     Active Substance: DAPAGLIFLOZIN PROPANEDIOL
     Indication: TYPE 2 DIABETES MELLITUS
     Route: 048
     Dates: start: 20170526
  48. FARXIGA [Suspect]
     Active Substance: DAPAGLIFLOZIN PROPANEDIOL
     Indication: TYPE 2 DIABETES MELLITUS
     Route: 048
     Dates: start: 20150908
  49. FARXIGA [Suspect]
     Active Substance: DAPAGLIFLOZIN PROPANEDIOL
     Indication: WEIGHT DECREASED
     Route: 048
     Dates: start: 20150905
  50. SODIUM CHLORIDE. [Concomitant]
     Active Substance: SODIUM CHLORIDE
  51. BYETTA [Concomitant]
     Active Substance: EXENATIDE

REACTIONS (10)
  - Perineal abscess [Unknown]
  - Leukocytosis [Unknown]
  - Scrotal abscess [Unknown]
  - Perineal cellulitis [Unknown]
  - Perirectal abscess [Unknown]
  - Necrotising fasciitis [Unknown]
  - Fournier^s gangrene [Unknown]
  - Sepsis [Unknown]
  - Cellulitis [Unknown]
  - Groin abscess [Unknown]

NARRATIVE: CASE EVENT DATE: 20150902
